FAERS Safety Report 19316086 (Version 3)
Quarter: 2021Q2

REPORT INFORMATION
  Report Type: Spontaneous
  Country: US (occurrence: US)
  Receive Date: 20210527
  Receipt Date: 20210603
  Transmission Date: 20210717
  Serious: No
  Sender: FDA-Public Use
  Company Number: US-SA-2021SA174194

PATIENT
  Age: 66 Year
  Sex: Female

DRUGS (1)
  1. DUPIXENT [Suspect]
     Active Substance: DUPILUMAB
     Indication: PSORIASIS
     Dosage: 300 MG, QOW
     Dates: start: 20210211

REACTIONS (2)
  - Product use in unapproved indication [Unknown]
  - Drug ineffective for unapproved indication [Unknown]

NARRATIVE: CASE EVENT DATE: 2021
